FAERS Safety Report 17044232 (Version 2)
Quarter: 2019Q4

REPORT INFORMATION
  Report Type: Report from Study
  Country: DE (occurrence: DE)
  Receive Date: 20191118
  Receipt Date: 20191210
  Transmission Date: 20200122
  Serious: Yes (Life-Threatening)
  Sender: FDA-Public Use
  Company Number: DE-ASTRAZENECA-2019SF63546

PATIENT
  Age: 7 Month
  Sex: Female
  Weight: 4.5 kg

DRUGS (9)
  1. SYNAGIS [Suspect]
     Active Substance: PALIVIZUMAB
     Indication: WOLF-HIRSCHHORN SYNDROME
     Dosage: 68.0MG UNKNOWN
     Route: 030
     Dates: start: 20191021, end: 20191026
  2. SYNAGIS [Suspect]
     Active Substance: PALIVIZUMAB
     Indication: PULMONARY VALVE STENOSIS
     Dosage: UNKNOWN
     Route: 030
     Dates: start: 20191122
  3. SYNAGIS [Suspect]
     Active Substance: PALIVIZUMAB
     Indication: ANTIVIRAL PROPHYLAXIS
     Dosage: UNKNOWN
     Route: 030
     Dates: start: 20191122
  4. SYNAGIS [Suspect]
     Active Substance: PALIVIZUMAB
     Indication: PULMONARY VALVE STENOSIS
     Dosage: 68.0MG UNKNOWN
     Route: 030
     Dates: start: 20191021, end: 20191026
  5. SYNAGIS [Suspect]
     Active Substance: PALIVIZUMAB
     Indication: WOLF-HIRSCHHORN SYNDROME
     Dosage: UNKNOWN
     Route: 030
     Dates: start: 20191122
  6. SYNAGIS [Suspect]
     Active Substance: PALIVIZUMAB
     Indication: PULMONARY VALVE STENOSIS
     Dosage: UNKNOWN
     Route: 030
  7. SYNAGIS [Suspect]
     Active Substance: PALIVIZUMAB
     Indication: ANTIVIRAL PROPHYLAXIS
     Dosage: 68.0MG UNKNOWN
     Route: 030
     Dates: start: 20191021, end: 20191026
  8. SYNAGIS [Suspect]
     Active Substance: PALIVIZUMAB
     Indication: ANTIVIRAL PROPHYLAXIS
     Dosage: UNKNOWN
     Route: 030
  9. SYNAGIS [Suspect]
     Active Substance: PALIVIZUMAB
     Indication: WOLF-HIRSCHHORN SYNDROME
     Dosage: UNKNOWN
     Route: 030

REACTIONS (1)
  - Seizure [Recovered/Resolved]

NARRATIVE: CASE EVENT DATE: 20191026
